FAERS Safety Report 17920398 (Version 1)
Quarter: 2020Q2

REPORT INFORMATION
  Report Type: Spontaneous
  Country: CO (occurrence: CO)
  Receive Date: 20200620
  Receipt Date: 20200620
  Transmission Date: 20200714
  Serious: Yes (Life-Threatening, Other)
  Sender: FDA-Public Use
  Company Number: NVSC2020CO165682

PATIENT
  Age: 15 Year
  Sex: Female

DRUGS (2)
  1. TRILEPTAL [Suspect]
     Active Substance: OXCARBAZEPINE
     Dosage: 5 ML, BID (5 ML IN THE MORNING AND 5 ML IN THE AFTERNOON)
     Route: 048
  2. TRILEPTAL [Suspect]
     Active Substance: OXCARBAZEPINE
     Indication: EPILEPSY
     Dosage: 10 ML, BID (10 ML IN THE MORNING AND 10 ML IN THE AFTERNOONAN)
     Route: 048

REACTIONS (4)
  - Seizure [Unknown]
  - Drug dependence [Unknown]
  - Feeling abnormal [Unknown]
  - Product availability issue [Unknown]
